FAERS Safety Report 9287952 (Version 2)
Quarter: 2013Q2

REPORT INFORMATION
  Report Type: Spontaneous
  Country: JP (occurrence: JP)
  Receive Date: 20130514
  Receipt Date: 20130610
  Transmission Date: 20140414
  Serious: Yes (Other)
  Sender: FDA-Public Use
  Company Number: JP-PFIZER INC-2013146930

PATIENT
  Age: 71 Year
  Sex: Male

DRUGS (2)
  1. LYRICA [Suspect]
     Indication: PAIN
     Dosage: UNK
     Route: 048
  2. HALCION [Interacting]
     Indication: INSOMNIA
     Dosage: UNK
     Route: 048

REACTIONS (2)
  - Potentiating drug interaction [Unknown]
  - Hypopnoea [Unknown]
